FAERS Safety Report 9729762 (Version 2)
Quarter: 2015Q3

REPORT INFORMATION
  Report Type: Spontaneous
  Country: US (occurrence: US)
  Receive Date: 20131204
  Receipt Date: 20150804
  Transmission Date: 20151125
  Serious: No
  Sender: FDA-Public Use
  Company Number: US-GILEAD-2009-0022451

PATIENT
  Age: 72 Year
  Sex: Female

DRUGS (11)
  1. SIMVASTATIN. [Concomitant]
     Active Substance: SIMVASTATIN
  2. CLONAZEPAM. [Concomitant]
     Active Substance: CLONAZEPAM
  3. MVI [Concomitant]
     Active Substance: VITAMINS
  4. LETAIRIS [Suspect]
     Active Substance: AMBRISENTAN
     Indication: PULMONARY ARTERIAL HYPERTENSION
     Route: 048
     Dates: start: 20090309
  5. PRILOSEC [Concomitant]
     Active Substance: OMEPRAZOLE MAGNESIUM
  6. ISOSORBIDE MONO [Concomitant]
  7. LEVOFLOXACIN. [Concomitant]
     Active Substance: LEVOFLOXACIN
  8. CALCIUM [Concomitant]
     Active Substance: CALCIUM
  9. LASIX [Concomitant]
     Active Substance: FUROSEMIDE
  10. METOPROLOL ER [Concomitant]
     Active Substance: METOPROLOL SUCCINATE
  11. ASPIRIN. [Concomitant]
     Active Substance: ASPIRIN

REACTIONS (1)
  - Oedema peripheral [Not Recovered/Not Resolved]

NARRATIVE: CASE EVENT DATE: 20090425
